FAERS Safety Report 6463666-0 (Version None)
Quarter: 2009Q4

REPORT INFORMATION
  Report Type: 
  Country: None (occurrence: None)
  Receive Date: 20091123
  Receipt Date: 20091105
  Transmission Date: 20100525
  Serious: Yes (Other)
  Sender: FDA-Public Use
  Company Number: DSA_41805_2009

PATIENT
  Sex: Female

DRUGS (1)
  1. ELONTRIL-BUPROPION HYDROCHLORIDE [Suspect]
     Indication: DEPRESSION
     Dosage: (DF), (300 MG BID, NOT THE PRESCRIBED AMOUNT ORAL), (300 GM QD ORAL), (150 MG BID ORAL)
     Route: 048

REACTIONS (5)
  - ACCIDENTAL OVERDOSE [None]
  - APHASIA [None]
  - GAIT DISTURBANCE [None]
  - RESTLESSNESS [None]
  - SLEEP DISORDER [None]
